FAERS Safety Report 6177787-3 (Version None)
Quarter: 2009Q2

REPORT INFORMATION
  Report Type: 
  Country: None (occurrence: None)
  Receive Date: 20090504
  Receipt Date: 20090501
  Transmission Date: 20091009
  Serious: Yes (Death)
  Sender: FDA-Public Use
  Company Number: GB-JNJFOC-20090500217

PATIENT
  Age: 19 Year
  Sex: Female

DRUGS (9)
  1. ITRACONAZOLE [Suspect]
     Indication: DRUG USE FOR UNKNOWN INDICATION
     Route: 065
  2. AZATHIOPRINE [Suspect]
     Indication: IMMUNOSUPPRESSION
     Route: 048
  3. FUNGIZONE [Suspect]
     Indication: DRUG USE FOR UNKNOWN INDICATION
     Route: 065
  4. METHYLPREDNISOLONE 4MG TAB [Suspect]
     Indication: IMMUNOSUPPRESSION
     Route: 042
  5. NEORAL [Suspect]
     Indication: IMMUNOSUPPRESSION
     Route: 048
  6. PREDNISOLONE [Suspect]
     Indication: IMMUNOSUPPRESSION
     Route: 065
  7. CEFTAZIDIME [Concomitant]
     Indication: PROPHYLAXIS
     Route: 042
  8. GENTAMICIN [Concomitant]
     Indication: PROPHYLAXIS
     Route: 042
  9. TEICOPLANIN [Concomitant]
     Indication: PROPHYLAXIS
     Route: 042

REACTIONS (1)
  - FUNGAL ENDOCARDITIS [None]
